FAERS Safety Report 15167329 (Version 1)
Quarter: 2018Q3

REPORT INFORMATION
  Report Type: Spontaneous
  Country: US (occurrence: US)
  Receive Date: 20180621
  Receipt Date: 20180621
  Transmission Date: 20181010
  Serious: No
  Sender: FDA-Public Use
  Company Number: None

PATIENT
  Sex: Female
  Weight: 135 kg

DRUGS (6)
  1. VALIUM [Concomitant]
     Active Substance: DIAZEPAM
  2. LVEOTYROXINE [Concomitant]
  3. DEPAKOTE [Suspect]
     Active Substance: DIVALPROEX SODIUM
  4. ZOLOFT [Concomitant]
     Active Substance: SERTRALINE HYDROCHLORIDE
  5. FLUTICASONE PROPIONATE NASAL SPRAY USP 50MCG 120 METERED SPRAY [Suspect]
     Active Substance: FLUTICASONE PROPIONATE
     Indication: MULTIPLE ALLERGIES
     Dosage: ?          OTHER STRENGTH:120;QUANTITY:1 SPRAY(S);?
     Route: 055
     Dates: start: 20180404, end: 20180605
  6. LISONPRIL [Concomitant]
     Active Substance: LISINOPRIL

REACTIONS (4)
  - Epistaxis [None]
  - Rhinalgia [None]
  - Facial pain [None]
  - Headache [None]
